FAERS Safety Report 7236125-5 (Version None)
Quarter: 2011Q1

REPORT INFORMATION
  Report Type: 
  Country: None (occurrence: None)
  Receive Date: 20110120
  Receipt Date: 20110113
  Transmission Date: 20110831
  Serious: Yes (Other)
  Sender: FDA-Public Use
  Company Number: IT-TEVA-263251USA

PATIENT
  Age: 26 Year
  Sex: Female

DRUGS (1)
  1. PIMOZIDE TABLETS [Suspect]
     Indication: ILL-DEFINED DISORDER
     Route: 048
     Dates: start: 20110109

REACTIONS (2)
  - TACHYCARDIA [None]
  - INTENTIONAL SELF-INJURY [None]
